FAERS Safety Report 9426532 (Version 1)
Quarter: 2013Q3

REPORT INFORMATION
  Report Type: Report from Study
  Country: FR (occurrence: FR)
  Receive Date: 20130730
  Receipt Date: 20130730
  Transmission Date: 20140515
  Serious: Yes (Hospitalization)
  Sender: FDA-Public Use
  Company Number: FR-ROCHE-1239814

PATIENT
  Age: 67 Year
  Sex: Female

DRUGS (16)
  1. PEG-INTERFERON ALFA 2A [Suspect]
     Indication: HEPATITIS C
     Route: 050
     Dates: start: 20121113
  2. RIBAVIRIN [Suspect]
     Indication: HEPATITIS C
     Route: 048
     Dates: start: 20121113, end: 20130121
  3. RIBAVIRIN [Suspect]
     Route: 048
     Dates: start: 20130122, end: 20130506
  4. RIBAVIRIN [Suspect]
     Route: 048
     Dates: start: 20130507
  5. TELAPREVIR [Suspect]
     Indication: HEPATITIS C
     Route: 048
     Dates: start: 20121113, end: 20130211
  6. LAROXYL [Concomitant]
     Indication: DEPRESSION
     Route: 048
  7. LIPANTHYL [Concomitant]
     Route: 048
  8. SEROPRAM (FRANCE) [Concomitant]
     Indication: DEPRESSION
     Route: 048
  9. KARDEGIC [Concomitant]
     Indication: PHLEBITIS
     Route: 048
  10. FOSAVANCE [Concomitant]
     Indication: OSTEOPOROSIS
     Route: 048
  11. LAMALINE [Concomitant]
  12. DUROGESIC [Concomitant]
  13. FURADANTINE [Concomitant]
  14. DEXERYL (FRANCE) [Concomitant]
  15. TELFAST (FRANCE) [Concomitant]
     Indication: PRURITUS
  16. XYZALL [Concomitant]

REACTIONS (1)
  - Anaemia [Not Recovered/Not Resolved]
